FAERS Safety Report 10260020 (Version 1)
Quarter: 2014Q2

REPORT INFORMATION
  Report Type: Report from Study
  Country: AR (occurrence: AR)
  Receive Date: 20140625
  Receipt Date: 20140625
  Transmission Date: 20141212
  Serious: Yes (Other)
  Sender: FDA-Public Use
  Company Number: AR-US-EMD SERONO, INC.-7301146

PATIENT
  Sex: Male

DRUGS (2)
  1. SAIZEN [Suspect]
     Indication: GROWTH HORMONE DEFICIENCY
     Dates: start: 20070330, end: 20140409
  2. SAIZEN [Suspect]
     Dates: start: 20140409, end: 201406

REACTIONS (1)
  - Type 1 diabetes mellitus [Not Recovered/Not Resolved]
